FAERS Safety Report 7757265-8 (Version None)
Quarter: 2011Q3

REPORT INFORMATION
  Report Type: 
  Country: None (occurrence: None)
  Receive Date: 20110916
  Receipt Date: 20110906
  Transmission Date: 20111222
  Serious: Yes (Other)
  Sender: FDA-Public Use
  Company Number: US-BAYER-2011-028538

PATIENT
  Age: 23 Year
  Sex: Female
  Weight: 90 kg

DRUGS (5)
  1. YASMIN [Suspect]
     Indication: CONTRACEPTION
     Dosage: UNK
     Dates: start: 20080301, end: 20080901
  2. CLARITHROMYCIN [Concomitant]
     Dosage: UNK
     Dates: start: 20080701
  3. AMOXICILLIN [Concomitant]
     Dosage: UNK
     Dates: start: 20080701
  4. YASMIN [Suspect]
     Indication: ACNE
     Dosage: UNK
     Dates: start: 20090101, end: 20091101
  5. NSAID'S [Concomitant]

REACTIONS (6)
  - CHOLECYSTITIS CHRONIC [None]
  - GALLBLADDER DISORDER [None]
  - INJURY [None]
  - PAIN [None]
  - CHOLELITHIASIS [None]
  - ABDOMINAL PAIN [None]
